FAERS Safety Report 8820924 (Version 2)
Quarter: 2012Q4

REPORT INFORMATION
  Report Type: 
  Country: GB (occurrence: GB)
  Receive Date: 20121002
  Receipt Date: 20121012
  Transmission Date: 20130627
  Serious: Yes (Other)
  Sender: FDA-Public Use
  Company Number: GB-ROCHE-1136277

PATIENT
  Age: 56 Year
  Sex: Female

DRUGS (8)
  1. RITUXIMAB [Suspect]
     Indication: RHEUMATOID ARTHRITIS
     Route: 042
     Dates: start: 20110808
  2. RITUXIMAB [Suspect]
     Route: 065
     Dates: end: 20120319
  3. LEFLUNOMIDE [Concomitant]
     Indication: RHEUMATOID ARTHRITIS
     Route: 048
  4. ATORVASTATIN [Concomitant]
     Route: 048
  5. INSULIN [Concomitant]
     Indication: DIABETES MELLITUS
     Route: 058
  6. METFORMIN [Concomitant]
     Indication: DIABETES MELLITUS
     Route: 048
  7. LAMOTRIGINE [Concomitant]
  8. KEPPRA [Concomitant]

REACTIONS (2)
  - Blood cholesterol increased [Unknown]
  - Blood triglycerides increased [Recovering/Resolving]
